FAERS Safety Report 7393881-3 (Version None)
Quarter: 2011Q1

REPORT INFORMATION
  Report Type: 
  Country: None (occurrence: None)
  Receive Date: 20110330
  Receipt Date: 20110330
  Transmission Date: 20110831
  Serious: Yes (Hospitalization, Disabling, Other)
  Sender: FDA-Public Use
  Company Number: None

PATIENT
  Age: 29 Year
  Sex: Female
  Weight: 89.8122 kg

DRUGS (3)
  1. ULTRAM [Suspect]
     Indication: DIARRHOEA
     Dosage: 100 MG EVERY 4-6 HRS PO
     Route: 048
     Dates: start: 20100709, end: 20110323
  2. ULTRAM [Suspect]
     Indication: IRRITABLE BOWEL SYNDROME
     Dosage: 100 MG EVERY 4-6 HRS PO
     Route: 048
     Dates: start: 20100709, end: 20110323
  3. ULTRAM [Suspect]
     Indication: FIBROMYALGIA
     Dosage: 100 MG EVERY 4-6 HRS PO
     Route: 048
     Dates: start: 20100709, end: 20110323

REACTIONS (1)
  - DRUG DEPENDENCE [None]
